FAERS Safety Report 18594954 (Version 3)
Quarter: 2022Q1

REPORT INFORMATION
  Report Type: Other
  Country: FR (occurrence: FR)
  Receive Date: 20201209
  Receipt Date: 20220210
  Transmission Date: 20220423
  Serious: Yes (Death, Life-Threatening, Hospitalization)
  Sender: FDA-Public Use
  Company Number: FR-SECURA BIO, INC.-2020FR007942

PATIENT

DRUGS (6)
  1. PANOBINOSTAT [Suspect]
     Active Substance: PANOBINOSTAT
     Indication: Product used for unknown indication
     Dosage: UNK
     Route: 065
     Dates: start: 20200713
  2. PANOBINOSTAT [Suspect]
     Active Substance: PANOBINOSTAT
     Dosage: UNK
     Dates: start: 20200803
  3. DEXAMETHASONE [Suspect]
     Active Substance: DEXAMETHASONE
     Indication: Product used for unknown indication
     Dosage: UNK
     Route: 065
     Dates: start: 20200713
  4. DEXAMETHASONE [Suspect]
     Active Substance: DEXAMETHASONE
     Dosage: UNK
     Dates: start: 20200803
  5. VELCADE [Suspect]
     Active Substance: BORTEZOMIB
     Indication: Product used for unknown indication
     Dosage: UNK
     Dates: start: 20200713
  6. VELCADE [Suspect]
     Active Substance: BORTEZOMIB
     Dosage: UNK
     Dates: start: 20200803

REACTIONS (2)
  - Gastrointestinal haemorrhage [Fatal]
  - Confusional state [Fatal]

NARRATIVE: CASE EVENT DATE: 20200805
